FAERS Safety Report 13711529 (Version 1)
Quarter: 2017Q3

REPORT INFORMATION
  Report Type: Spontaneous
  Country: PR (occurrence: PR)
  Receive Date: 20170703
  Receipt Date: 20170703
  Transmission Date: 20171127
  Serious: No
  Sender: FDA-Public Use
  Company Number: PR-SEBELA IRELAND LIMITED-2016SEB01461

PATIENT
  Sex: Female
  Weight: 63.49 kg

DRUGS (4)
  1. ALOSETRON HYDROCHLORIDE. [Suspect]
     Active Substance: ALOSETRON HYDROCHLORIDE
     Indication: IRRITABLE BOWEL SYNDROME
     Dosage: 1 MG, 2X/DAY
     Route: 048
     Dates: start: 2015, end: 2015
  2. ^ZYMAX DUO CAP^ [Concomitant]
     Dosage: 1 OR 2 A DAY AS NEEDED
  3. WELCHOL [Concomitant]
     Active Substance: COLESEVELAM HYDROCHLORIDE
     Dosage: 1250 MG, 1X/DAY
  4. HYOSCYAMINE. [Concomitant]
     Active Substance: HYOSCYAMINE
     Dosage: 0.125 MG, UNK
     Route: 060

REACTIONS (2)
  - Drug ineffective [Recovered/Resolved]
  - Product substitution issue [Not Recovered/Not Resolved]
